FAERS Safety Report 5909155-0 (Version None)
Quarter: 2008Q4

REPORT INFORMATION
  Report Type: 
  Country: None (occurrence: None)
  Receive Date: 20081006
  Receipt Date: 20080924
  Transmission Date: 20090506
  Serious: Yes (Other)
  Sender: FDA-Public Use
  Company Number: PHHY2008BE21926

PATIENT

DRUGS (3)
  1. ZOMETA [Suspect]
     Indication: MULTIPLE MYELOMA
  2. VELCADE [Concomitant]
  3. LENALIDOMIDE [Concomitant]

REACTIONS (1)
  - OSTEONECROSIS [None]
